FAERS Safety Report 12257271 (Version 1)
Quarter: 2016Q2

REPORT INFORMATION
  Report Type: Spontaneous
  Country: US (occurrence: None)
  Receive Date: 20160411
  Receipt Date: 20160411
  Transmission Date: 20160815
  Serious: No
  Sender: FDA-Public Use
  Company Number: None

PATIENT
  Age: 66 Year
  Sex: Female
  Weight: 107.96 kg

DRUGS (12)
  1. PROVENTIL HFA [Concomitant]
     Active Substance: ALBUTEROL SULFATE
  2. INCRUSE ELLIPTA [Suspect]
     Active Substance: UMECLIDINIUM BROMIDE
     Route: 048
     Dates: start: 20160228, end: 20160228
  3. CASCARA SAGRADA [Concomitant]
     Active Substance: FRANGULA PURSHIANA BARK
  4. BENADRYL [Concomitant]
     Active Substance: DIPHENHYDRAMINE HYDROCHLORIDE
  5. IBUPROFEN. [Concomitant]
     Active Substance: IBUPROFEN
  6. MILK THISTLE [Concomitant]
     Active Substance: MILK THISTLE
  7. SPIRIVA [Concomitant]
     Active Substance: TIOTROPIUM BROMIDE MONOHYDRATE
  8. SINGULAIR [Concomitant]
     Active Substance: MONTELUKAST SODIUM
  9. MUPIROCIN. [Concomitant]
     Active Substance: MUPIROCIN
  10. VOLTAREN [Concomitant]
     Active Substance: DICLOFENAC SODIUM
  11. GUAIFENESIN. [Concomitant]
     Active Substance: GUAIFENESIN
  12. LOTREL [Concomitant]
     Active Substance: AMLODIPINE BESYLATE\BENAZEPRIL HYDROCHLORIDE

REACTIONS (8)
  - Headache [None]
  - Dyspnoea [None]
  - Joint injury [None]
  - Rhinalgia [None]
  - Nausea [None]
  - Thinking abnormal [None]
  - Nasal discomfort [None]
  - Visual acuity reduced [None]

NARRATIVE: CASE EVENT DATE: 20160228
